FAERS Safety Report 21597377 (Version 1)
Quarter: 2022Q4

REPORT INFORMATION
  Report Type: Spontaneous
  Country: US (occurrence: None)
  Receive Date: 20221114
  Receipt Date: 20221114
  Transmission Date: 20230113
  Serious: Yes (Death, Hospitalization)
  Sender: FDA-Public Use
  Company Number: None

PATIENT
  Age: 74 Year
  Sex: Male
  Weight: 111 kg

DRUGS (2)
  1. IPILIMUMAB [Suspect]
     Active Substance: IPILIMUMAB
     Indication: Metastatic renal cell carcinoma
     Dates: start: 20221010, end: 20221010
  2. NIVOLUMAB [Suspect]
     Active Substance: NIVOLUMAB

REACTIONS (7)
  - Asthenia [None]
  - Atrioventricular block complete [None]
  - Pulseless electrical activity [None]
  - Multiple organ dysfunction syndrome [None]
  - Metabolic acidosis [None]
  - Cardiac failure acute [None]
  - Myocarditis [None]

NARRATIVE: CASE EVENT DATE: 20221025
